FAERS Safety Report 24400956 (Version 1)
Quarter: 2024Q4

REPORT INFORMATION
  Report Type: Report from Study
  Country: US (occurrence: US)
  Receive Date: 20241006
  Receipt Date: 20241006
  Transmission Date: 20250115
  Serious: Yes (Hospitalization)
  Sender: ABBVIE
  Company Number: US-ABBVIE-5949376

PATIENT
  Sex: Female

DRUGS (1)
  1. RINVOQ [Suspect]
     Active Substance: UPADACITINIB
     Indication: Rheumatoid arthritis
     Dosage: FORM STRENGTH:15 MG
     Route: 048
     Dates: start: 202402, end: 20240718

REACTIONS (3)
  - Dyspnoea [Recovered/Resolved]
  - Allergic respiratory symptom [Recovered/Resolved]
  - Allergy to animal [Recovered/Resolved]

NARRATIVE: CASE EVENT DATE: 20240101
